FAERS Safety Report 7496062-8 (Version None)
Quarter: 2011Q2

REPORT INFORMATION
  Report Type: 
  Country: None (occurrence: None)
  Receive Date: 20110520
  Receipt Date: 20110520
  Transmission Date: 20111010
  Serious: Yes (Disabling)
  Sender: FDA-Public Use
  Company Number: None

PATIENT
  Sex: Male
  Weight: 68 kg

DRUGS (15)
  1. DIOVAN [Suspect]
     Indication: HYPERTENSION
     Dosage: 160MG ONCE DAILY PO
     Route: 048
     Dates: start: 20100201, end: 20110426
  2. LANSOPRAZOLE [Concomitant]
  3. SPS [Concomitant]
  4. BISACODYL [Concomitant]
  5. ASPIRIN [Concomitant]
  6. FENOFIBRATE [Concomitant]
  7. SEROQUEL [Concomitant]
  8. APAP TAB [Concomitant]
  9. CARVEDILOL [Concomitant]
  10. MILK OF MAGNESIA TAB [Concomitant]
  11. DOCUSATE [Concomitant]
  12. FERROUS SULFATE TAB [Concomitant]
  13. PEF [Concomitant]
  14. TRAMADOL HCL [Concomitant]
  15. VITAMIN D [Concomitant]

REACTIONS (1)
  - BLOOD CREATININE INCREASED [None]
